FAERS Safety Report 12274734 (Version 1)
Quarter: 2016Q2

REPORT INFORMATION
  Report Type: Spontaneous
  Country: US (occurrence: US)
  Receive Date: 20160415
  Receipt Date: 20160415
  Transmission Date: 20160815
  Serious: No
  Sender: FDA-Public Use
  Company Number: US-ALLERGAN-1508319US

PATIENT
  Age: 57 Year
  Sex: Male

DRUGS (1)
  1. LUMIGAN [Suspect]
     Active Substance: BIMATOPROST
     Indication: GLAUCOMA
     Dosage: 1 GTT, QHS
     Route: 047
     Dates: start: 20150422, end: 20150426

REACTIONS (6)
  - Erythema [Unknown]
  - Nasal discomfort [Not Recovered/Not Resolved]
  - Drug hypersensitivity [Unknown]
  - Ocular hyperaemia [Unknown]
  - Nasal discomfort [Recovered/Resolved]
  - Similar reaction on previous exposure to drug [Unknown]

NARRATIVE: CASE EVENT DATE: 20150429
